FAERS Safety Report 18122522 (Version 1)
Quarter: 2020Q3

REPORT INFORMATION
  Report Type: Spontaneous
  Country: ES (occurrence: ES)
  Receive Date: 20200807
  Receipt Date: 20200807
  Transmission Date: 20201103
  Serious: Yes (Other)
  Sender: FDA-Public Use
  Company Number: NVSC2020ES215278

PATIENT
  Age: 47 Year
  Sex: Female

DRUGS (2)
  1. COSENTYX [Suspect]
     Active Substance: SECUKINUMAB
     Indication: PSORIATIC ARTHROPATHY
     Dosage: 300 MG, QW
     Route: 058
     Dates: start: 20200203, end: 20200224
  2. STELARA [Concomitant]
     Active Substance: USTEKINUMAB
     Indication: PSORIATIC ARTHROPATHY
     Dosage: 90 MG, Q3MO (12 WEEK)
     Route: 058
     Dates: start: 20190122, end: 20191202

REACTIONS (2)
  - Conjunctivitis [Recovering/Resolving]
  - Otitis media acute [Recovering/Resolving]

NARRATIVE: CASE EVENT DATE: 20200203
